FAERS Safety Report 8921930 (Version 1)
Quarter: 2012Q4

REPORT INFORMATION
  Report Type: Spontaneous
  Country: US (occurrence: None)
  Receive Date: 20121119
  Receipt Date: 20121119
  Transmission Date: 20130627
  Serious: Yes (Life-Threatening, Other)
  Sender: FDA-Public Use
  Company Number: None

PATIENT
  Age: 58 Year
  Sex: Female
  Weight: 94 kg

DRUGS (1)
  1. CLOPIDOGREL 75MG [Suspect]
     Indication: HYPERCOAGULATION
     Dosage: 1
     Route: 048
     Dates: start: 20120804, end: 20121116

REACTIONS (8)
  - Headache [None]
  - Palpitations [None]
  - Insomnia [None]
  - Nausea [None]
  - Confusional state [None]
  - Visual impairment [None]
  - Product substitution issue [None]
  - Therapeutic response unexpected [None]
